FAERS Safety Report 17396245 (Version 1)
Quarter: 2020Q1

REPORT INFORMATION
  Report Type: Spontaneous
  Country: US (occurrence: US)
  Receive Date: 20200210
  Receipt Date: 20200210
  Transmission Date: 20200409
  Serious: No
  Sender: FDA-Public Use
  Company Number: US-SA-2020SA033459

PATIENT
  Age: 58 Year
  Sex: Female

DRUGS (2)
  1. CAPRELSA [Suspect]
     Active Substance: VANDETANIB
     Indication: THYROID CANCER
     Dosage: 100 MG, QD
     Route: 048
     Dates: start: 20200109
  2. CAPRELSA [Suspect]
     Active Substance: VANDETANIB
     Dosage: DOSE REDUCED

REACTIONS (4)
  - Fatigue [Unknown]
  - Joint swelling [Unknown]
  - Protein urine [Unknown]
  - Abdominal distension [Unknown]
